FAERS Safety Report 5409842-7 (Version None)
Quarter: 2007Q3

REPORT INFORMATION
  Report Type: 
  Country: None (occurrence: None)
  Receive Date: 20070807
  Receipt Date: 20070803
  Transmission Date: 20080115
  Serious: Yes (Death)
  Sender: FDA-Public Use
  Company Number: 056-C5013-07080220

PATIENT
  Age: 58 Year
  Sex: Male

DRUGS (4)
  1. CC-5013 (LENALIDOMIDE) [Suspect]
     Indication: MULTIPLE MYELOMA
     Dosage: 25 MG, DAILY, ORAL
     Route: 048
     Dates: start: 20061006, end: 20061219
  2. DEXAMETHASONE TAB [Concomitant]
  3. DURAGESIC-100 [Concomitant]
  4. ATHYMIL           (MIANSERIN HYDROCHLORIDE) [Concomitant]

REACTIONS (5)
  - CACHEXIA [None]
  - DRUG INTOLERANCE [None]
  - MALIGNANT NEOPLASM PROGRESSION [None]
  - MULTIPLE MYELOMA [None]
  - NO THERAPEUTIC RESPONSE [None]
